FAERS Safety Report 4902089-X (Version None)
Quarter: 2006Q1

REPORT INFORMATION
  Report Type: 
  Country: None (occurrence: None)
  Receive Date: 20060206
  Receipt Date: 20060203
  Transmission Date: 20060701
  Serious: Yes (Hospitalization)
  Sender: FDA-Public Use
  Company Number: FRASAN06023

PATIENT
  Age: 42 Year
  Sex: Male

DRUGS (3)
  1. AMOXICILLIN AND CLAVULANATE POTASSIUM [Suspect]
     Route: 048
     Dates: start: 20060120
  2. CELESTENE [Concomitant]
     Dosage: 2MG UNKNOWN
  3. DOLIPRANE [Concomitant]
     Dosage: 1000MG UNKNOWN

REACTIONS (2)
  - ANAPHYLACTIC SHOCK [None]
  - CARDIAC DISORDER [None]
